FAERS Safety Report 6204255-2 (Version None)
Quarter: 2009Q2

REPORT INFORMATION
  Report Type: 
  Country: None (occurrence: None)
  Receive Date: 20090521
  Receipt Date: 20090511
  Transmission Date: 20091009
  Serious: Yes (Life-Threatening)
  Sender: FDA-Public Use
  Company Number: 2009-196593-NL

PATIENT
  Age: 80 Year
  Sex: Male

DRUGS (4)
  1. MIRTAZAPINE [Suspect]
  2. RABEPRAZOLE SODIUM [Concomitant]
  3. PREDNISONE [Concomitant]
  4. METOCLOPRAMIDE [Concomitant]

REACTIONS (1)
  - SARCOMA [None]
